FAERS Safety Report 10042679 (Version 1)
Quarter: 2014Q1

REPORT INFORMATION
  Report Type: Spontaneous
  Country: DK (occurrence: DK)
  Receive Date: 20140327
  Receipt Date: 20140327
  Transmission Date: 20141002
  Serious: Yes (Death, Other)
  Sender: FDA-Public Use
  Company Number: PHHY2014DK036859

PATIENT
  Age: 56 Year
  Sex: Female

DRUGS (5)
  1. CICLOSPORIN [Suspect]
     Indication: IMMUNOSUPPRESSION
  2. MYCOPHENOLATE MOFETIL [Suspect]
     Indication: IMMUNOSUPPRESSION
  3. PREDNISOLONE [Suspect]
     Indication: IMMUNOSUPPRESSION
  4. VORICONAZOLE [Concomitant]
     Dosage: 0.1 MG, UNK
     Route: 031
  5. VORICONAZOLE [Concomitant]
     Dosage: 600 MG, BID

REACTIONS (5)
  - Multi-organ failure [Fatal]
  - Endophthalmitis [Unknown]
  - Conjunctival hyperaemia [Unknown]
  - Corneal oedema [Unknown]
  - Anterior chamber inflammation [Unknown]
